FAERS Safety Report 10080433 (Version 1)
Quarter: 2014Q2

REPORT INFORMATION
  Report Type: Report from Study
  Country: US (occurrence: US)
  Receive Date: 20140416
  Receipt Date: 20140416
  Transmission Date: 20141212
  Serious: Yes (Other)
  Sender: FDA-Public Use
  Company Number: GXBR2014US001081

PATIENT
  Age: 0 Day
  Sex: Male

DRUGS (1)
  1. ENOXAPARIN SODIUM [Suspect]
     Dosage: MATERNAL DOSE: 80MG BID
     Route: 064

REACTIONS (2)
  - Premature baby [Recovered/Resolved]
  - Foetal exposure during pregnancy [Recovered/Resolved]
